FAERS Safety Report 22167993 (Version 1)
Quarter: 2023Q2

REPORT INFORMATION
  Report Type: Spontaneous
  Country: FI (occurrence: FI)
  Receive Date: 20230403
  Receipt Date: 20230403
  Transmission Date: 20230721
  Serious: Yes (Other)
  Sender: FDA-Public Use
  Company Number: FI-TEVA-2023-FI-2871537

PATIENT
  Age: 64 Year
  Sex: Male

DRUGS (1)
  1. DUTASTERIDE [Suspect]
     Active Substance: DUTASTERIDE
     Indication: Benign prostatic hyperplasia
     Dosage: .5 MILLIGRAM DAILY;
     Route: 048
     Dates: start: 2023

REACTIONS (7)
  - Gait inability [Recovering/Resolving]
  - Pain in extremity [Recovering/Resolving]
  - Prostatic pain [Recovering/Resolving]
  - Abdominal pain lower [Recovering/Resolving]
  - Pain [Recovering/Resolving]
  - Arthralgia [Recovering/Resolving]
  - Product substitution issue [Unknown]

NARRATIVE: CASE EVENT DATE: 20230101
